FAERS Safety Report 7966231-9 (Version None)
Quarter: 2011Q4

REPORT INFORMATION
  Report Type: 
  Country: None (occurrence: None)
  Receive Date: 20111208
  Receipt Date: 20111117
  Transmission Date: 20120403
  Serious: No
  Sender: FDA-Public Use
  Company Number: US-BAYER-2011-111954

PATIENT
  Age: 83 Year
  Sex: Male
  Weight: 83.9 kg

DRUGS (6)
  1. ALEVE (CAPLET) [Suspect]
     Dosage: 1 DF, BID
     Route: 048
     Dates: start: 20111001
  2. MULTIVITAMIN [Concomitant]
  3. CORTISONE ACETATE [Concomitant]
  4. BISELIC [Concomitant]
  5. VITAMIN E [Concomitant]
  6. ASPIRIN [Concomitant]
     Dosage: UNK UNK, QD

REACTIONS (1)
  - NO ADVERSE EVENT [None]
